FAERS Safety Report 4436398-8 (Version None)
Quarter: 2004Q3

REPORT INFORMATION
  Report Type: 
  Country: None (occurrence: None)
  Receive Date: 20040830
  Receipt Date: 20040503
  Transmission Date: 20050211
  Serious: No
  Sender: FDA-Public Use
  Company Number: US-BRISTOL-MYERS SQUIBB COMPANY-12578274

PATIENT
  Age: 31 Year
  Sex: Female

DRUGS (3)
  1. ABILIFY [Suspect]
     Indication: SCHIZOAFFECTIVE DISORDER
     Dosage: REDUCED TO 5 MG/DAY
     Route: 048
  2. ZYPREXA [Concomitant]
  3. ZOLOFT [Concomitant]

REACTIONS (3)
  - DISSOCIATION [None]
  - DIZZINESS [None]
  - PSYCHOTIC DISORDER [None]
